FAERS Safety Report 17056569 (Version 1)
Quarter: 2019Q4

REPORT INFORMATION
  Report Type: Spontaneous
  Country: US (occurrence: US)
  Receive Date: 20191121
  Receipt Date: 20191121
  Transmission Date: 20200122
  Serious: No
  Sender: FDA-Public Use
  Company Number: US-BIOGEN-2019BI00807570

PATIENT
  Age: 56 Year
  Sex: Female

DRUGS (1)
  1. TECFIDERA [Suspect]
     Active Substance: DIMETHYL FUMARATE
     Indication: MULTIPLE SCLEROSIS
     Route: 065
     Dates: start: 20180419

REACTIONS (9)
  - Fatigue [Unknown]
  - Contusion [Unknown]
  - Peripheral swelling [Unknown]
  - Limb discomfort [Unknown]
  - Haemorrhage [Unknown]
  - Head injury [Unknown]
  - Fall [Recovered/Resolved]
  - Pain in extremity [Unknown]
  - Limb injury [Unknown]

NARRATIVE: CASE EVENT DATE: 20191027
